FAERS Safety Report 7484155-0 (Version None)
Quarter: 2011Q2

REPORT INFORMATION
  Report Type: 
  Country: None (occurrence: None)
  Receive Date: 20110517
  Receipt Date: 20110504
  Transmission Date: 20111010
  Serious: Yes (Hospitalization, Other)
  Sender: FDA-Public Use
  Company Number: FR-ELI_LILLY_AND_COMPANY-FR201102003036

PATIENT
  Sex: Female
  Weight: 61.5 kg

DRUGS (8)
  1. VOLTAREN [Concomitant]
     Indication: NECK PAIN
     Dosage: 1 DF, QD
     Route: 048
     Dates: start: 20110205
  2. PANTOPRAZOLE [Concomitant]
     Dosage: UNK
     Route: 048
     Dates: start: 20100101
  3. CYMBALTA [Suspect]
     Dosage: 60 MG, BID
     Route: 048
     Dates: start: 20100301, end: 20110201
  4. BROMAZEPAM [Concomitant]
     Indication: DEPRESSION
     Dosage: UNK
     Route: 048
     Dates: start: 20100101
  5. ACETAMINOPHEN [Concomitant]
     Indication: NECK PAIN
     Dosage: UNK, PRN
     Route: 048
  6. MONOCRIXO [Concomitant]
     Indication: NECK PAIN
     Dosage: 1 DF, QD
     Route: 048
     Dates: start: 20110205
  7. KETOPROFEN [Concomitant]
     Dosage: UNK
     Dates: start: 20110301
  8. LEXOMIL [Concomitant]
     Dates: end: 20110208

REACTIONS (6)
  - HEPATITIS C ANTIBODY POSITIVE [None]
  - BILIARY CYST [None]
  - URINARY RETENTION [None]
  - HEPATITIS E [None]
  - CHOLESTASIS [None]
  - RASH [None]
